FAERS Safety Report 19876641 (Version 2)
Quarter: 2021Q3

REPORT INFORMATION
  Report Type: Spontaneous
  Country: PT (occurrence: PT)
  Receive Date: 20210923
  Receipt Date: 20210930
  Transmission Date: 20211014
  Serious: Yes (Other)
  Sender: FDA-Public Use
  Company Number: PT-MYLANLABS-2021M1063007

PATIENT
  Age: 27 Year
  Sex: Female

DRUGS (3)
  1. LORAZEPAM. [Suspect]
     Active Substance: LORAZEPAM
     Indication: PRODUCT USED FOR UNKNOWN INDICATION
     Dosage: 2.5 MILLIGRAM, TID
  2. ARIPIPRAZOLE. [Suspect]
     Active Substance: ARIPIPRAZOLE
     Dosage: 20 MILLIGRAM, QD
  3. ARIPIPRAZOLE. [Suspect]
     Active Substance: ARIPIPRAZOLE
     Indication: PRODUCT USED FOR UNKNOWN INDICATION
     Dosage: 15 MILLIGRAM, QD

REACTIONS (12)
  - Hostility [Unknown]
  - Schizoaffective disorder [Unknown]
  - Substance-induced psychotic disorder [Unknown]
  - Restlessness [Unknown]
  - Psychomotor hyperactivity [Unknown]
  - Speech disorder [Unknown]
  - Agitation [Unknown]
  - Acute psychosis [Unknown]
  - Psychotic disorder due to a general medical condition [Unknown]
  - Bipolar I disorder [Unknown]
  - Schizophrenia [Unknown]
  - Delusion [Unknown]
